FAERS Safety Report 18403468 (Version 1)
Quarter: 2020Q4

REPORT INFORMATION
  Report Type: Spontaneous
  Country: US (occurrence: US)
  Receive Date: 20201019
  Receipt Date: 20201019
  Transmission Date: 20210114
  Serious: Yes (Hospitalization)
  Sender: FDA-Public Use
  Company Number: None

PATIENT
  Age: 80 Year
  Sex: Female

DRUGS (1)
  1. NUPLAZID [Suspect]
     Active Substance: PIMAVANSERIN TARTRATE
     Route: 048
     Dates: start: 20201016, end: 20201019

REACTIONS (3)
  - Hallucination [None]
  - Confusional state [None]
  - Hallucination, visual [None]

NARRATIVE: CASE EVENT DATE: 20201019
